FAERS Safety Report 16749139 (Version 1)
Quarter: 2019Q3

REPORT INFORMATION
  Report Type: Spontaneous
  Country: US (occurrence: US)
  Receive Date: 20190828
  Receipt Date: 20190828
  Transmission Date: 20191005
  Serious: No
  Sender: FDA-Public Use
  Company Number: US-GLAXOSMITHKLINE-US2019AMR152798

PATIENT
  Sex: Male
  Weight: 63.5 kg

DRUGS (3)
  1. REQUIP [Suspect]
     Active Substance: ROPINIROLE HYDROCHLORIDE
     Indication: RESTLESS LEGS SYNDROME
     Dosage: UNK
     Route: 065
  2. CELEXA [Suspect]
     Active Substance: CITALOPRAM HYDROBROMIDE
     Indication: EUPHORIC MOOD
     Dosage: 40 MG, 1D
     Route: 048
  3. MOBIC [Suspect]
     Active Substance: MELOXICAM
     Indication: HEADACHE
     Dosage: 7 MG, 1D
     Route: 048
     Dates: start: 2014

REACTIONS (3)
  - Depression [Unknown]
  - Feeling abnormal [Unknown]
  - Adverse drug reaction [Unknown]
